FAERS Safety Report 4708779-6 (Version None)
Quarter: 2005Q3

REPORT INFORMATION
  Report Type: 
  Country: None (occurrence: None)
  Receive Date: 20050705
  Receipt Date: 20050617
  Transmission Date: 20060218
  Serious: Yes (Hospitalization)
  Sender: FDA-Public Use
  Company Number: DSA_26682_2005

PATIENT
  Age: 83 Year
  Sex: Female

DRUGS (6)
  1. ENALAPRIL MALEATE [Suspect]
     Indication: HYPERTENSION
     Dosage: 5 MG QD PO
     Route: 048
     Dates: start: 20041101, end: 20050515
  2. ALPRAZOLAM [Concomitant]
  3. INSULIN GLARGINE [Concomitant]
  4. IRON [Concomitant]
  5. LEVOTHYROXINE SODIUM [Concomitant]
  6. LOXAPINE SUCCINATE [Concomitant]

REACTIONS (2)
  - HEPATITIS [None]
  - PROTHROMBIN TIME PROLONGED [None]
